FAERS Safety Report 5065270-8 (Version None)
Quarter: 2006Q3

REPORT INFORMATION
  Report Type: 
  Country: None (occurrence: None)
  Receive Date: 20060725
  Receipt Date: 20060630
  Transmission Date: 20061208
  Serious: Yes (Other)
  Sender: FDA-Public Use
  Company Number: 2006089075

PATIENT
  Age: 12 Year
  Sex: Female
  Weight: 31 kg

DRUGS (8)
  1. VIAGRA [Suspect]
     Indication: PULMONARY HYPERTENSION
     Dosage: 25 MG (8.33 MG, 3 IN 1 D), ORAL
     Route: 048
     Dates: start: 20050331
  2. WARFARIN SODIUM [Concomitant]
  3. OXYGEN (OXYGEN) [Concomitant]
  4. LASIX [Concomitant]
  5. ENALAPRIL MALEATE [Concomitant]
  6. PERSANTIN [Concomitant]
  7. DIGOXIN [Concomitant]
  8. EPOPROSTENOL (EPOPROSTENOL) [Concomitant]

REACTIONS (3)
  - CONDITION AGGRAVATED [None]
  - HEADACHE [None]
  - PULMONARY ARTERIAL PRESSURE INCREASED [None]
